FAERS Safety Report 11663117 (Version 1)
Quarter: 2015Q4

REPORT INFORMATION
  Report Type: Spontaneous
  Country: US (occurrence: US)
  Receive Date: 20151027
  Receipt Date: 20151027
  Transmission Date: 20160304
  Serious: No
  Sender: FDA-Public Use
  Company Number: US-MEDA-2011030098

PATIENT
  Age: 51 Year
  Sex: Male

DRUGS (3)
  1. DILAUDID [Concomitant]
     Active Substance: HYDROMORPHONE HYDROCHLORIDE
     Indication: NEOPLASM MALIGNANT
     Route: 048
  2. ONSOLIS [Suspect]
     Active Substance: FENTANYL CITRATE
     Indication: NEOPLASM MALIGNANT
     Route: 002
     Dates: start: 20101223, end: 201102
  3. ONSOLIS [Suspect]
     Active Substance: FENTANYL CITRATE
     Indication: NEOPLASM MALIGNANT
     Route: 002
     Dates: start: 201102

REACTIONS (1)
  - Dehydration [Recovered/Resolved]

NARRATIVE: CASE EVENT DATE: 201102
